FAERS Safety Report 4848443-6 (Version None)
Quarter: 2005Q4

REPORT INFORMATION
  Report Type: 
  Country: None (occurrence: None)
  Receive Date: 20051208
  Receipt Date: 20051205
  Transmission Date: 20060501
  Serious: Yes (Hospitalization)
  Sender: FDA-Public Use
  Company Number: FR-GLAXOSMITHKLINE-B0402787A

PATIENT
  Age: 83 Year
  Sex: Female

DRUGS (2)
  1. CLAMOXYL [Suspect]
     Indication: ANTIBIOTIC PROPHYLAXIS
     Dosage: 2G PER DAY
     Dates: start: 20050919, end: 20050923
  2. CEFAZOLIN [Suspect]
     Indication: PROPHYLAXIS
     Dosage: 2G PER DAY
     Route: 042
     Dates: start: 20050923, end: 20050923

REACTIONS (6)
  - DYSPHAGIA [None]
  - ERYTHEMA [None]
  - ORAL SOFT TISSUE DISORDER [None]
  - RASH [None]
  - TOXIC SKIN ERUPTION [None]
  - URTICARIA [None]
